FAERS Safety Report 15757126 (Version 1)
Quarter: 2018Q4

REPORT INFORMATION
  Report Type: Spontaneous
  Country: EE (occurrence: EE)
  Receive Date: 20181224
  Receipt Date: 20181224
  Transmission Date: 20190205
  Serious: Yes (Life-Threatening, Hospitalization)
  Sender: FDA-Public Use
  Company Number: EE-PFIZER INC-2016150266

PATIENT
  Age: 57 Year
  Sex: Female
  Weight: 97 kg

DRUGS (1)
  1. TREXAN [Suspect]
     Active Substance: METHOTREXATE SODIUM
     Indication: RHEUMATOID ARTHRITIS
     Dosage: 12.5 MG, 1X/DAY
     Route: 048
     Dates: start: 20160130, end: 20160212

REACTIONS (9)
  - Aphthous ulcer [Recovered/Resolved]
  - Gastrointestinal wall thickening [Unknown]
  - Pancytopenia [Recovered/Resolved]
  - Pyrexia [Recovered/Resolved]
  - Haematochezia [Recovered/Resolved]
  - Accidental overdose [Unknown]
  - Abdominal pain lower [Recovered/Resolved]
  - C-reactive protein increased [Recovered/Resolved]
  - Inappropriate schedule of product administration [Unknown]

NARRATIVE: CASE EVENT DATE: 20160130
